FAERS Safety Report 10361909 (Version 1)
Quarter: 2014Q1

REPORT INFORMATION
  Report Type: Spontaneous
  Country: US (occurrence: None)
  Receive Date: 20140306
  Receipt Date: 20140306
  Transmission Date: 20141002
  Serious: Yes (Other)
  Sender: FDA-Public Use
  Company Number: 163-21880-13073687

PATIENT
  Age: 79 Year
  Sex: Female

DRUGS (6)
  1. REVLIMID [Suspect]
     Indication: MYELODYSPLASTIC SYNDROME
     Dosage: 5 MG, 11 IN 11 D, PO  PERMANENTLY DISCONTINUED
     Route: 048
     Dates: start: 20100129
  2. CALCIUM +D (OS-CAL) [Concomitant]
  3. D3-1000 (COLECALCIFEROL) [Concomitant]
  4. DOCUSATE SODIUM (DOCUSATE SODIUM) [Concomitant]
  5. MIRTAZAPINE (MIRTAZAPINE) [Concomitant]
  6. VERAPAMIL HCL (VERAPAMIL HYDROCHLORIDE) [Concomitant]

REACTIONS (4)
  - Myelodysplastic syndrome [None]
  - Disease progression [None]
  - Full blood count decreased [None]
  - Drug ineffective [None]
